FAERS Safety Report 7495252-8 (Version None)
Quarter: 2011Q2

REPORT INFORMATION
  Report Type: 
  Country: None (occurrence: None)
  Receive Date: 20110522
  Receipt Date: 20110509
  Transmission Date: 20111010
  Serious: Yes (Death)
  Sender: FDA-Public Use
  Company Number: GB-MYLANLABS-2011S1009616

PATIENT
  Age: 61 Year
  Sex: Female

DRUGS (4)
  1. AMISULPRIDE [Concomitant]
     Indication: SCHIZOPHRENIA
     Route: 048
  2. DIAZEPAM [Concomitant]
     Indication: ANXIETY
  3. CITALOPRAM HYDROBROMIDE [Suspect]
     Indication: DEPRESSION
     Route: 048
  4. CLOZAPINE [Suspect]
     Indication: SCHIZOPHRENIA
     Route: 048
     Dates: start: 20101029, end: 20110209

REACTIONS (7)
  - OVERDOSE [None]
  - PELVIC ADHESIONS [None]
  - INTESTINAL OBSTRUCTION [None]
  - MALAISE [None]
  - ASPIRATION [None]
  - VOMITING [None]
  - DRUG INTERACTION [None]
